FAERS Safety Report 16971805 (Version 1)
Quarter: 2019Q4

REPORT INFORMATION
  Report Type: Spontaneous
  Country: US (occurrence: US)
  Receive Date: 20191029
  Receipt Date: 20191029
  Transmission Date: 20200122
  Serious: No
  Sender: FDA-Public Use
  Company Number: US-SA-2019SA294940

PATIENT
  Age: 57 Year
  Sex: Female

DRUGS (1)
  1. NASACORT ALLERGY 24HR [Suspect]
     Active Substance: TRIAMCINOLONE ACETONIDE
     Indication: EUSTACHIAN TUBE DISORDER
     Dosage: UNK UNK, BID
     Route: 065

REACTIONS (3)
  - Palpitations [Unknown]
  - Agitation [Unknown]
  - Anxiety [Unknown]
